FAERS Safety Report 5252233-2 (Version None)
Quarter: 2007Q1

REPORT INFORMATION
  Report Type: 
  Country: None (occurrence: None)
  Receive Date: 20070227
  Receipt Date: 20070227
  Transmission Date: 20070707
  Serious: Yes (Other)
  Sender: FDA-Public Use
  Company Number: None

PATIENT
  Age: 63 Year
  Sex: Male
  Weight: 104 kg

DRUGS (2)
  1. TRAMADOL HCL [Suspect]
     Indication: ILL-DEFINED DISORDER
     Dosage: 16 DROPS  TWICE DAILY  PO; 8 DROPS  ONCE DAILY  PO
     Route: 048
     Dates: start: 20030715, end: 20070226
  2. TRAMADOL HCL [Suspect]
     Indication: PAIN IN EXTREMITY
     Dosage: 16 DROPS  TWICE DAILY  PO; 8 DROPS  ONCE DAILY  PO
     Route: 048
     Dates: start: 20030715, end: 20070226

REACTIONS (4)
  - CONVULSION [None]
  - DRUG INTERACTION [None]
  - SALIVARY HYPERSECRETION [None]
  - SPEECH DISORDER [None]
